APPROVED DRUG PRODUCT: MORPHINE SULFATE
Active Ingredient: MORPHINE SULFATE
Strength: 20MG/5ML
Dosage Form/Route: SOLUTION;ORAL
Application: A203519 | Product #001
Applicant: TRIS PHARMA INC
Approved: May 18, 2016 | RLD: No | RS: No | Type: DISCN